FAERS Safety Report 16774128 (Version 1)
Quarter: 2019Q3

REPORT INFORMATION
  Report Type: Spontaneous
  Country: US (occurrence: US)
  Receive Date: 20190905
  Receipt Date: 20190905
  Transmission Date: 20191005
  Serious: Yes (Other)
  Sender: FDA-Public Use
  Company Number: US-MACLEODS PHARMACEUTICALS US LTD-MAC2019022782

PATIENT

DRUGS (7)
  1. TRIAMCINOLONE [Suspect]
     Active Substance: TRIAMCINOLONE
     Indication: CATARACT OPERATION
     Dosage: 40 MILLIGRAM, SUB-TENON TRIAMCINOLONE 40 MG INJECTION OD
     Route: 047
  2. LOTEPREDNOL ETABONATE 0.5% [Concomitant]
     Indication: UVEITIS
     Dosage: BID, OPHTHALMIC GEL BILATERAL (OU)
     Route: 047
  3. PREDNISONE. [Concomitant]
     Active Substance: PREDNISONE
     Dosage: 5 MILLIGRAM, QD
     Route: 048
  4. PREDNISONE. [Concomitant]
     Active Substance: PREDNISONE
     Indication: UVEITIS
     Dosage: 50 MILLIGRAM, QD
     Route: 048
  5. PREDNISOLONE. [Suspect]
     Active Substance: PREDNISOLONE
     Indication: PRODUCT USED FOR UNKNOWN INDICATION
     Dosage: UNK, TOPICAL OPHTHALMIC SUSPENSION INTERMITTENTLY FOR MANY YEARS WITH QUESTIONABLE COMPLIANCE EYE DR
     Route: 061
  6. MYCOPHENOLIC ACID. [Concomitant]
     Active Substance: MYCOPHENOLIC ACID
     Dosage: 1500 MILLIGRAM, BID
     Route: 065
  7. MYCOPHENOLIC ACID. [Concomitant]
     Active Substance: MYCOPHENOLIC ACID
     Indication: UVEITIS
     Dosage: 1000 MILLIGRAM, BID, FOR SEVERAL YEARS.
     Route: 065

REACTIONS (2)
  - Intraocular pressure increased [Recovered/Resolved]
  - Cataract [Recovered/Resolved]
